FAERS Safety Report 7069033-3 (Version None)
Quarter: 2010Q4

REPORT INFORMATION
  Report Type: 
  Country: None (occurrence: None)
  Receive Date: 20101028
  Receipt Date: 20101021
  Transmission Date: 20110411
  Serious: Yes (Hospitalization, Other)
  Sender: FDA-Public Use
  Company Number: US-EISAI INC.-E2020-07804-SOL-US

PATIENT
  Sex: Female
  Weight: 67.3 kg

DRUGS (7)
  1. ARICEPT [Suspect]
     Route: 048
     Dates: start: 20070610
  2. MEMANTINE [Suspect]
     Route: 048
     Dates: start: 20070101
  3. ZOLOFT [Suspect]
     Indication: DEPRESSION
     Route: 048
     Dates: start: 20020101, end: 20100901
  4. ZOLOFT [Suspect]
     Route: 048
     Dates: start: 20100901
  5. ENSURE PLUS [Concomitant]
     Dosage: 4 CANS PER DAY
     Route: 048
     Dates: start: 20100901
  6. MEGESTROL ACETATE [Concomitant]
     Dosage: 625MG PER 5ML
     Route: 048
     Dates: start: 20100830
  7. ESOMEPRAZOLE MAGNESIUM [Concomitant]
     Route: 048
     Dates: start: 20100818

REACTIONS (2)
  - DIARRHOEA [None]
  - GALLBLADDER CANCER [None]
